FAERS Safety Report 12332106 (Version 1)
Quarter: 2016Q2

REPORT INFORMATION
  Report Type: Spontaneous
  Country: US (occurrence: US)
  Receive Date: 20160504
  Receipt Date: 20160504
  Transmission Date: 20160815
  Serious: No
  Sender: FDA-Public Use
  Company Number: US-ROCHE-1642368

PATIENT
  Sex: Female
  Weight: 55.84 kg

DRUGS (13)
  1. LUMIGAN [Concomitant]
     Active Substance: BIMATOPROST
  2. MELOXICAM. [Concomitant]
     Active Substance: MELOXICAM
  3. OXYGEN. [Concomitant]
     Active Substance: OXYGEN
  4. ESBRIET [Suspect]
     Active Substance: PIRFENIDONE
     Dosage: 2 CAPSULES 3 TIMES A DAY
     Route: 048
     Dates: start: 20151118
  5. LORATADINE. [Concomitant]
     Active Substance: LORATADINE
  6. ALBUTEROL. [Concomitant]
     Active Substance: ALBUTEROL
  7. TYLENOL PM [Concomitant]
     Active Substance: ACETAMINOPHEN\DIPHENHYDRAMINE
  8. NEXIUM [Concomitant]
     Active Substance: ESOMEPRAZOLE MAGNESIUM
     Dosage: DRUG: NEXIUM DR
     Route: 065
  9. ESBRIET [Suspect]
     Active Substance: PIRFENIDONE
     Dosage: 2 CAPSULES 3 TIMES A DAY
     Route: 048
  10. TRAMADOL. [Concomitant]
     Active Substance: TRAMADOL
  11. LUTEIN [Concomitant]
     Active Substance: LUTEIN
  12. ESBRIET [Suspect]
     Active Substance: PIRFENIDONE
     Indication: IDIOPATHIC PULMONARY FIBROSIS
     Dosage: 3 CAPSULES 3 TIMES DAILY
     Route: 048
     Dates: start: 20150912
  13. PREDNISONE. [Concomitant]
     Active Substance: PREDNISONE

REACTIONS (4)
  - Dysgeusia [Recovering/Resolving]
  - Weight decreased [Recovering/Resolving]
  - Weight increased [Unknown]
  - Decreased appetite [Recovering/Resolving]
